FAERS Safety Report 9858334 (Version 2)
Quarter: 2014Q1

REPORT INFORMATION
  Report Type: Spontaneous
  Country: US (occurrence: US)
  Receive Date: 20140131
  Receipt Date: 20140203
  Transmission Date: 20141002
  Serious: No
  Sender: FDA-Public Use
  Company Number: US-009507513-1401USA008088

PATIENT
  Age: 55 Year
  Sex: Female

DRUGS (7)
  1. PEGINTRON [Suspect]
     Indication: HEPATITIS C
     Dosage: REDIPEN(DOSE:0.45ML) ONCE A WEEK
     Route: 058
     Dates: start: 20140108
  2. REBETOL [Suspect]
     Indication: HEPATITIS C
     Dosage: (2 IN A.M. 3 IN P.M) DAILY, (2 IN AM AND 3 12 HOURS LATER DAILY)
     Route: 048
     Dates: start: 20140108
  3. SOFOSBUVIR [Concomitant]
     Dosage: 1 DF, QD (1 DAILY)
  4. CENTRUM SILVER [Concomitant]
     Dosage: STRENGTH:CENTRUM SILVER, 1 DAILY
  5. CHOLECALCIFEROL [Concomitant]
     Dosage: 1 A DAY IF HAS LEG CRAMPS
  6. POTASSIUM (UNSPECIFIED) [Concomitant]
     Dosage: 1 A DAY IF HAS LEG CRAMPS
  7. MAGNESIUM (UNSPECIFIED) [Concomitant]
     Dosage: 1 A DAY IF HAS LEG CRAMPS

REACTIONS (9)
  - Malaise [Unknown]
  - Hangover [Unknown]
  - Muscle spasms [Unknown]
  - Muscle tightness [Unknown]
  - Tremor [Unknown]
  - Influenza [Unknown]
  - Nasopharyngitis [Unknown]
  - Overdose [Unknown]
  - Chills [Unknown]
